FAERS Safety Report 4518452-5 (Version None)
Quarter: 2004Q4

REPORT INFORMATION
  Report Type: 
  Country: None (occurrence: None)
  Receive Date: 20041202
  Receipt Date: 20041119
  Transmission Date: 20050328
  Serious: Yes (Other)
  Sender: FDA-Public Use
  Company Number: 2004089226

PATIENT
  Age: 67 Year
  Sex: Female

DRUGS (2)
  1. VISINE II EYE DROPS [Suspect]
     Indication: EYE REDNESS
     Dosage: OPHTHALMIC
     Route: 047
  2. VISINE TEARS (GLYCERIN, POLYETHYLENE GLYCOL,  HYDROXYPROPYLMETHYLCELLU [Suspect]
     Indication: DRY EYE
     Dosage: 1-2 TIMES DAILY, OPHTHALMIC
     Route: 047
     Dates: start: 20041012, end: 20041112

REACTIONS (2)
  - DRUG EFFECT DECREASED [None]
  - LENS IMPLANT [None]
